FAERS Safety Report 6294769-1 (Version None)
Quarter: 2009Q3

REPORT INFORMATION
  Report Type: 
  Country: None (occurrence: None)
  Receive Date: 20090803
  Receipt Date: 20090723
  Transmission Date: 20100115
  Serious: Yes (Death)
  Sender: FDA-Public Use
  Company Number: US-PFIZER INC-2009245927

PATIENT
  Age: 46 Year
  Sex: Male

DRUGS (5)
  1. DOXEPIN HCL [Suspect]
  2. ZYPREXA [Suspect]
     Dosage: 15 MG, UNK
  3. WELLBUTRIN SR [Suspect]
  4. METHAMPHETAMINE [Suspect]
  5. BUSPAR [Concomitant]

REACTIONS (6)
  - COMPLETED SUICIDE [None]
  - DRUG TOXICITY [None]
  - EMPHYSEMA [None]
  - MEDICATION RESIDUE [None]
  - NEEDLE TRACK MARKS [None]
  - PARTNER STRESS [None]
